FAERS Safety Report 20126135 (Version 1)
Quarter: 2021Q4

REPORT INFORMATION
  Report Type: Spontaneous
  Country: SI (occurrence: SI)
  Receive Date: 20211129
  Receipt Date: 20211129
  Transmission Date: 20220303
  Serious: Yes (Other)
  Sender: FDA-Public Use
  Company Number: SI-002147023-NVSC2021SI212349

PATIENT
  Sex: Male

DRUGS (18)
  1. PREGABALIN [Suspect]
     Active Substance: PREGABALIN
     Indication: Product used for unknown indication
     Dosage: 300 MILLIGRAM, QD, 150 MG (2X75MG), BID
     Route: 065
  2. INDAPAMIDE\PERINDOPRIL [Suspect]
     Active Substance: INDAPAMIDE\PERINDOPRIL
     Indication: Product used for unknown indication
     Dosage: 1 DOSAGE FORM, QD, 1 DF (4 MG OF PERINDOPRIL AND
     Route: 065
  3. PANTOPRAZOLE [Suspect]
     Active Substance: PANTOPRAZOLE
     Indication: Product used for unknown indication
     Dosage: 20 MILLIGRAM, PRN, 20 MG, PRN
     Route: 065
  4. QUETIAPINE [Suspect]
     Active Substance: QUETIAPINE
     Indication: Product used for unknown indication
     Dosage: 50 MILLIGRAM, PM, 50 MG IN THE EVENING (ERP 4 A 25MG)
     Route: 065
  5. QUETIAPINE [Suspect]
     Active Substance: QUETIAPINE
     Dosage: 50 MILLIGRAM, PM, 50 MG 1 IN THE EVENING + IF NECESSARY
     Route: 065
  6. QUETIAPINE [Suspect]
     Active Substance: QUETIAPINE
     Dosage: UNK, 12.5 TO 25 MG
     Route: 065
  7. DULOXETINE [Suspect]
     Active Substance: DULOXETINE
     Indication: Product used for unknown indication
     Dosage: 30 MILLIGRAM, 30 MG (FOR 7 DAYS)
     Route: 065
     Dates: start: 20210907
  8. DULOXETINE [Suspect]
     Active Substance: DULOXETINE
     Dosage: 60 MILLIGRAM, QD, 60 MG, QD
     Route: 048
     Dates: end: 2021
  9. DULOXETINE [Suspect]
     Active Substance: DULOXETINE
     Dosage: 60 MILLIGRAM, 60 MG (2X 30 MG, ERP 60 AND 30MG)
     Route: 065
     Dates: start: 20210914
  10. ESCITALOPRAM [Suspect]
     Active Substance: ESCITALOPRAM OXALATE
     Indication: Product used for unknown indication
     Dosage: UNK
     Route: 065
  11. ESCITALOPRAM [Suspect]
     Active Substance: ESCITALOPRAM OXALATE
     Dosage: 20 MILLIGRAM, QD, 20 MG, QD (IN THE MORNING)
     Route: 065
     Dates: start: 2018
  12. ACETAMINOPHEN [Suspect]
     Active Substance: ACETAMINOPHEN
     Indication: Product used for unknown indication
     Dosage: 500 MILLIGRAM, PRN, 500 MG, PRN
     Route: 065
  13. BISOPROLOL [Suspect]
     Active Substance: BISOPROLOL
     Indication: Product used for unknown indication
     Dosage: 2.5 MILLIGRAM, QD, 2.5 MG, QD
     Route: 065
  14. EPLERENONE [Suspect]
     Active Substance: EPLERENONE
     Indication: Product used for unknown indication
     Dosage: 25 MILLIGRAM, QD, 25 MG, QD
     Route: 065
  15. RIVAROXABAN [Concomitant]
     Active Substance: RIVAROXABAN
     Indication: Product used for unknown indication
     Dosage: 20 MILLIGRAM, QD, 20 MG, QD
     Route: 065
  16. BROMAZEPAM [Concomitant]
     Active Substance: BROMAZEPAM
     Indication: Anxiety
     Dosage: UNK UNK, PRN, 3X0.5MG + 0.5MG, PRN
     Route: 065
  17. ROSUVASTATIN [Concomitant]
     Active Substance: ROSUVASTATIN
     Indication: Product used for unknown indication
     Dosage: 1 DOSAGE FORM, QD, 1 DF, QD
     Route: 065
  18. NITROGLYCERIN [Concomitant]
     Active Substance: NITROGLYCERIN
     Indication: Product used for unknown indication
     Dosage: 2 DOSAGE FORM, PRN, 2 DF, PRN (2 PUFFS)
     Route: 065

REACTIONS (38)
  - Respiratory depression [Unknown]
  - Deafness [Unknown]
  - Syncope [Unknown]
  - Ureteric haemorrhage [Unknown]
  - Cardiac failure [Unknown]
  - Chest injury [Unknown]
  - Weight decreased [Unknown]
  - Joint contracture [Unknown]
  - Abdominal pain upper [Unknown]
  - Dizziness [Unknown]
  - Chills [Unknown]
  - Insomnia [Unknown]
  - Panic disorder [Unknown]
  - Affect lability [Unknown]
  - Dry skin [Unknown]
  - Thermal burn [Unknown]
  - Chest discomfort [Unknown]
  - Condition aggravated [Unknown]
  - Tinnitus [Not Recovered/Not Resolved]
  - Head discomfort [Unknown]
  - Headache [Unknown]
  - Rib fracture [Unknown]
  - Limb injury [Unknown]
  - Irritable bowel syndrome [Unknown]
  - Nuchal rigidity [Unknown]
  - Hypertension [Unknown]
  - Limb discomfort [Unknown]
  - Illness [Unknown]
  - Appetite disorder [Unknown]
  - Pain [Unknown]
  - Wheezing [Unknown]
  - Angiogram [Unknown]
  - Tremor [Unknown]
  - Blood pressure fluctuation [Unknown]
  - Chest pain [Unknown]
  - Tension [Unknown]
  - Dyspnoea [Unknown]
  - Off label use [Unknown]

NARRATIVE: CASE EVENT DATE: 20190101
